FAERS Safety Report 9624895 (Version 1)
Quarter: 2013Q4

REPORT INFORMATION
  Report Type: Spontaneous
  Country: US (occurrence: US)
  Receive Date: 20131016
  Receipt Date: 20131016
  Transmission Date: 20140711
  Serious: Yes (Hospitalization)
  Sender: FDA-Public Use
  Company Number: US-AMGEN-USASP2013071981

PATIENT
  Age: 63 Year
  Sex: Male
  Weight: 106.58 kg

DRUGS (8)
  1. ENBREL [Suspect]
     Indication: PRODUCT USED FOR UNKNOWN INDICATION
     Dosage: 25 MG, 2 TIMES/WK
     Route: 058
     Dates: end: 2011
  2. OXYCODONE [Concomitant]
     Dosage: 15 MG, UNK
  3. PREDNISONE [Concomitant]
     Dosage: 5 MG, UNK
  4. DICLOFENAC [Concomitant]
     Dosage: 75 MG, UNK
  5. LISINOPRIL [Concomitant]
     Dosage: 5 MG, UNK
  6. ATENOLOL [Concomitant]
     Dosage: 50 MG, UNK
  7. PLAQUENIL                          /00072602/ [Concomitant]
     Dosage: 200 MG, UNK
  8. TRAMADOL HCL [Concomitant]
     Dosage: 50 MG, UNK

REACTIONS (5)
  - Localised infection [Unknown]
  - Feeling hot [Unknown]
  - Furuncle [Unknown]
  - Pyrexia [Unknown]
  - Tremor [Unknown]
